FAERS Safety Report 12961545 (Version 2)
Quarter: 2016Q4

REPORT INFORMATION
  Report Type: Spontaneous
  Country: BW (occurrence: BW)
  Receive Date: 20161121
  Receipt Date: 20161128
  Transmission Date: 20170207
  Serious: Yes (Hospitalization)
  Sender: FDA-Public Use
  Company Number: BW-TAKEDA-2016TUS020875

PATIENT
  Age: 71 Year
  Sex: Female

DRUGS (3)
  1. BRINTELLIX [Suspect]
     Active Substance: VORTIOXETINE HYDROBROMIDE
     Dosage: 10 MG, QD
     Route: 065
     Dates: start: 201607, end: 201610
  2. BRINTELLIX [Suspect]
     Active Substance: VORTIOXETINE HYDROBROMIDE
     Indication: DEPRESSION
     Dosage: 5 MG, QD
     Route: 065
     Dates: start: 201603, end: 201607
  3. BRINTELLIX [Suspect]
     Active Substance: VORTIOXETINE HYDROBROMIDE
     Dosage: 20 MG, QD
     Route: 065
     Dates: start: 201610

REACTIONS (11)
  - Thinking abnormal [Unknown]
  - Malaise [Unknown]
  - Drug ineffective [Unknown]
  - Depressed mood [Unknown]
  - Negative thoughts [Unknown]
  - Depressed mood [Unknown]
  - Pneumonia [Unknown]
  - Feeling abnormal [Unknown]
  - Insomnia [Unknown]
  - Depression [Unknown]
  - Depressed mood [Unknown]

NARRATIVE: CASE EVENT DATE: 201606
